FAERS Safety Report 8234771-3 (Version None)
Quarter: 2012Q1

REPORT INFORMATION
  Report Type: 
  Country: None (occurrence: None)
  Receive Date: 20120307
  Receipt Date: 20090922
  Transmission Date: 20120608
  Serious: Yes (Other)
  Sender: FDA-Public Use
  Company Number: PHEH2009US12688

PATIENT
  Sex: Male

DRUGS (2)
  1. AFINITOR [Suspect]
  2. SUTENT [Suspect]

REACTIONS (1)
  - DISEASE PROGRESSION [None]
